FAERS Safety Report 5847141-X (Version None)
Quarter: 2008Q3

REPORT INFORMATION
  Report Type: 
  Country: None (occurrence: None)
  Receive Date: 20080815
  Receipt Date: 20080806
  Transmission Date: 20090109
  Serious: Yes (Other)
  Sender: FDA-Public Use
  Company Number: PHHY2008JP17345

PATIENT
  Age: 51 Year
  Sex: Female

DRUGS (3)
  1. CYCLOSPORINE [Suspect]
     Indication: AUTOIMMUNE HEPATITIS
     Dosage: 3 MG/KG/D
     Route: 042
     Dates: start: 20070127
  2. PREDNISOLONE [Concomitant]
     Indication: AUTOIMMUNE HEPATITIS
     Dosage: 40 MG
     Route: 048
     Dates: start: 20061122, end: 20070127
  3. PREDNISOLONE [Concomitant]
     Dosage: 25 MG/DAY
     Route: 048
     Dates: start: 20070127

REACTIONS (2)
  - HYPERAMYLASAEMIA [None]
  - PNEUMOCYSTIS JIROVECI PNEUMONIA [None]
